FAERS Safety Report 19050838 (Version 2)
Quarter: 2021Q2

REPORT INFORMATION
  Report Type: Report from Study
  Country: None (occurrence: US)
  Receive Date: 20210323
  Receipt Date: 20210411
  Transmission Date: 20210717
  Serious: Yes (Hospitalization)
  Sender: FDA-Public Use
  Company Number: US-ABBVIE-21K-163-3823956-00

PATIENT
  Age: 51 Year
  Sex: Female
  Weight: 74.91 kg

DRUGS (5)
  1. RINVOQ [Suspect]
     Active Substance: UPADACITINIB
     Indication: RHEUMATOID ARTHRITIS
     Dosage: SIX TO EIGHT MONTHS AGO
     Route: 048
     Dates: start: 2020
  2. SULFASALAZINE. [Concomitant]
     Active Substance: SULFASALAZINE
     Indication: RHEUMATOID ARTHRITIS
  3. FLEXERIL [Concomitant]
     Active Substance: CYCLOBENZAPRINE HYDROCHLORIDE
     Indication: PRODUCT USED FOR UNKNOWN INDICATION
  4. ATORVASTATIN [Concomitant]
     Active Substance: ATORVASTATIN
     Indication: BLOOD CHOLESTEROL
  5. BUSPAR [Concomitant]
     Active Substance: BUSPIRONE HYDROCHLORIDE
     Indication: ANXIETY

REACTIONS (13)
  - Pneumonia [Recovering/Resolving]
  - Gait inability [Recovering/Resolving]
  - Rash [Not Recovered/Not Resolved]
  - White blood cell count abnormal [Recovering/Resolving]
  - Weight decreased [Recovering/Resolving]
  - Unevaluable event [Unknown]
  - Ageusia [Recovering/Resolving]
  - Inflammatory marker increased [Recovering/Resolving]
  - Mobility decreased [Unknown]
  - Malaise [Unknown]
  - Anosmia [Recovering/Resolving]
  - Decreased appetite [Recovering/Resolving]
  - SARS-CoV-2 test positive [Recovering/Resolving]

NARRATIVE: CASE EVENT DATE: 202103
